FAERS Safety Report 5622660-X (Version None)
Quarter: 2008Q1

REPORT INFORMATION
  Report Type: 
  Country: None (occurrence: None)
  Receive Date: 20080212
  Receipt Date: 20080207
  Transmission Date: 20080703
  Serious: Yes (Other)
  Sender: FDA-Public Use
  Company Number: BR-TEVA-167258USA

PATIENT
  Sex: Female

DRUGS (1)
  1. PIMOZIDE TABLETS [Suspect]
     Route: 048
     Dates: start: 20080121, end: 20080124

REACTIONS (6)
  - AMNESIA [None]
  - DIZZINESS [None]
  - MALAISE [None]
  - MEDICATION ERROR [None]
  - MUSCULAR WEAKNESS [None]
  - TREMOR [None]
